FAERS Safety Report 14625870 (Version 1)
Quarter: 2018Q1

REPORT INFORMATION
  Report Type: Spontaneous
  Country: US (occurrence: US)
  Receive Date: 20180312
  Receipt Date: 20180312
  Transmission Date: 20180509
  Serious: Yes (Other)
  Sender: FDA-Public Use
  Company Number: US-JAZZ-JPI-P-031292

PATIENT
  Age: 39 Year
  Sex: Female

DRUGS (3)
  1. XYREM [Suspect]
     Active Substance: SODIUM OXYBATE
     Dosage: 4.5 G, BID
     Route: 048
  2. XYREM [Suspect]
     Active Substance: SODIUM OXYBATE
     Indication: NARCOLEPSY
     Dosage: UNK UNKNOWN, SINGLE
     Route: 048
     Dates: start: 200803
  3. DULOXETINE. [Concomitant]
     Active Substance: DULOXETINE
     Indication: PRODUCT USED FOR UNKNOWN INDICATION
     Dosage: UNKNOWN SINGLE (UNKNOWN)

REACTIONS (7)
  - Bile duct stenosis [Unknown]
  - Oedema peripheral [Unknown]
  - Colitis microscopic [Unknown]
  - Mitochondrial cytopathy [Unknown]
  - Pancreatic enzymes decreased [Unknown]
  - Sinus tachycardia [Unknown]
  - Herpes zoster [Recovered/Resolved]

NARRATIVE: CASE EVENT DATE: 200808
